FAERS Safety Report 10610415 (Version 1)
Quarter: 2014Q4

REPORT INFORMATION
  Report Type: Spontaneous
  Country: CH (occurrence: None)
  Receive Date: 20141124
  Receipt Date: 20141124
  Transmission Date: 20150529
  Serious: Yes (Hospitalization)
  Sender: FDA-Public Use
  Company Number: VAL_03638_2014

PATIENT
  Age: 37 Year
  Sex: Female

DRUGS (7)
  1. ROCEPHIN [Suspect]
     Active Substance: CEFTRIAXONE SODIUM
     Indication: PNEUMONIA BACTERIAL
     Dosage: OVER 24 HOURS IV DRIP
     Route: 042
     Dates: start: 20140829, end: 20140831
  2. AMOXICILLIN AND CLAVULANATE POTASSIUM [Suspect]
     Active Substance: AMOXICILLIN\CLAVULANATE POTASSIUM
     Indication: PRODUCT USED FOR UNKNOWN INDICATION
     Dosage: (DF)
  3. CLEXANE [Concomitant]
     Active Substance: ENOXAPARIN SODIUM
  4. KLACID [Suspect]
     Active Substance: CLARITHROMYCIN
     Indication: PNEUMONIA BACTERIAL
     Route: 048
     Dates: start: 20140829, end: 20140831
  5. METHERGIN [Suspect]
     Active Substance: METHYLERGONOVINE MALEATE
     Indication: PRODUCT USED FOR UNKNOWN INDICATION
     Dosage: (DF)
  6. PANTOZOL [Concomitant]
     Active Substance: PANTOPRAZOLE SODIUM
  7. DAFALGAN [Concomitant]
     Active Substance: ACETAMINOPHEN

REACTIONS (8)
  - Hypertensive crisis [None]
  - Pleural effusion [None]
  - Oxygen saturation decreased [None]
  - Acute abdomen [None]
  - Capillary leak syndrome [None]
  - Haemoglobin decreased [None]
  - Pneumonia bacterial [None]
  - Oedema peripheral [None]

NARRATIVE: CASE EVENT DATE: 20140830
